FAERS Safety Report 8820486 (Version 4)
Quarter: 2012Q4

REPORT INFORMATION
  Report Type: 
  Country: US (occurrence: US)
  Receive Date: 20121002
  Receipt Date: 20121108
  Transmission Date: 20130627
  Serious: Yes (Other)
  Sender: FDA-Public Use
  Company Number: US-SANOFI-AVENTIS-2012SA069494

PATIENT
  Age: 76 Year
  Sex: Female
  Weight: 81 kg

DRUGS (6)
  1. PLAVIX [Suspect]
     Indication: THROMBOSIS PROPHYLAXIS
     Route: 048
     Dates: start: 2005, end: 20120909
  2. PLAVIX [Suspect]
     Indication: THROMBOSIS PROPHYLAXIS
     Dates: start: 20120917, end: 20120919
  3. COREG [Suspect]
     Indication: HEART DISORDER
     Route: 065
     Dates: start: 200909
  4. METFORMIN HYDROCHLORIDE [Suspect]
     Indication: DIABETES MELLITUS
     Route: 048
     Dates: start: 2004
  5. POTASSIUM [Concomitant]
  6. FUROSEMIDE [Concomitant]
     Indication: CONGESTIVE HEART FAILURE

REACTIONS (6)
  - Myocardial infarction [Unknown]
  - Ejection fraction decreased [Unknown]
  - Neoplasm malignant [Unknown]
  - Drug hypersensitivity [Recovered/Resolved]
  - Oedema peripheral [Recovering/Resolving]
  - Pruritus [Recovering/Resolving]
